FAERS Safety Report 9252368 (Version 1)
Quarter: 2013Q1

REPORT INFORMATION
  Report Type: Spontaneous
  Country: US (occurrence: None)
  Receive Date: 20130305
  Receipt Date: 20130305
  Transmission Date: 20140127
  Serious: Yes (Other)
  Sender: FDA-Public Use
  Company Number: 163-21880-12083135

PATIENT
  Age: 55 Year
  Sex: Female

DRUGS (3)
  1. REVLIMID [Suspect]
     Indication: PARAPROTEINAEMIA
     Dosage: 10 MG, 11 IN 11 D, PO
     Route: 048
     Dates: start: 20110621
  2. ALLOPURINOL [Suspect]
  3. NEXIUM [Suspect]

REACTIONS (2)
  - Fall [None]
  - Decreased appetite [None]
